FAERS Safety Report 14890827 (Version 1)
Quarter: 2018Q2

REPORT INFORMATION
  Report Type: Spontaneous
  Country: US (occurrence: US)
  Receive Date: 20180514
  Receipt Date: 20180514
  Transmission Date: 20180711
  Serious: No
  Sender: FDA-Public Use
  Company Number: US-UNITED THERAPEUTICS-UNT-2018-002393

PATIENT
  Age: 65 Year
  Sex: Female
  Weight: 92.63 kg

DRUGS (1)
  1. TYVASO [Suspect]
     Active Substance: TREPROSTINIL
     Indication: PULMONARY ARTERIAL HYPERTENSION
     Dosage: 60-72 MICROGRAMS, QID
     Dates: start: 20170126

REACTIONS (2)
  - Dyspnoea [Unknown]
  - Off label use [Unknown]

NARRATIVE: CASE EVENT DATE: 20170126
